FAERS Safety Report 10570270 (Version 1)
Quarter: 2014Q4

REPORT INFORMATION
  Report Type: Spontaneous
  Country: US (occurrence: None)
  Receive Date: 20141106
  Receipt Date: 20141106
  Transmission Date: 20150529
  Serious: Yes (Disabling)
  Sender: FDA-Public Use
  Company Number: None

PATIENT
  Age: 55 Year
  Sex: Female
  Weight: 58.97 kg

DRUGS (1)
  1. ALPRAZOLAM. [Suspect]
     Active Substance: ALPRAZOLAM
     Indication: SLEEP DISORDER
     Dosage: ONE PILL NIGHTLY AT BEDTIME
     Route: 048
     Dates: start: 20141013, end: 20141029

REACTIONS (7)
  - Condition aggravated [None]
  - Pain [None]
  - Coeliac disease [None]
  - Constipation [None]
  - Product size issue [None]
  - Diarrhoea [None]
  - Neuropathy peripheral [None]

NARRATIVE: CASE EVENT DATE: 20141015
